FAERS Safety Report 4338139-1 (Version None)
Quarter: 2004Q2

REPORT INFORMATION
  Report Type: 
  Country: None (occurrence: None)
  Receive Date: 20040407
  Receipt Date: 20040329
  Transmission Date: 20050107
  Serious: Yes (Hospitalization)
  Sender: FDA-Public Use
  Company Number: 2004206108DE

PATIENT
  Age: 64 Year
  Sex: Female
  Weight: 75 kg

DRUGS (3)
  1. GENOTROPIN [Suspect]
     Indication: HYPOPITUITARISM
     Dosage: 0.4 MG, QD; 0.3 MG QD; 0.2 MG, QD
     Dates: start: 19990818, end: 20021202
  2. GENOTROPIN [Suspect]
     Indication: HYPOPITUITARISM
     Dosage: 0.4 MG, QD; 0.3 MG QD; 0.2 MG, QD
     Dates: start: 20021203, end: 20030512
  3. GENOTROPIN [Suspect]
     Indication: HYPOPITUITARISM
     Dosage: 0.4 MG, QD; 0.3 MG QD; 0.2 MG, QD
     Dates: start: 20030513

REACTIONS (1)
  - CARPAL TUNNEL SYNDROME [None]
